FAERS Safety Report 4652474-9 (Version None)
Quarter: 2005Q3

REPORT INFORMATION
  Report Type: 
  Country: None (occurrence: None)
  Receive Date: 20050502
  Receipt Date: 20050421
  Transmission Date: 20060218
  Serious: Yes (Death, Hospitalization, Other)
  Sender: FDA-Public Use
  Company Number: 2005-04-0053

PATIENT
  Age: 50 Year
  Sex: Male
  Weight: 90 kg

DRUGS (2)
  1. PEG-INTRON [Suspect]
     Indication: MULTIPLE MYELOMA
     Dosage: 50 MCG QWK SUBCUTANEOUS
     Route: 058
     Dates: start: 20040607
  2. ZOLENDRONATE INJECTABLE [Concomitant]

REACTIONS (6)
  - CARDIO-RESPIRATORY ARREST [None]
  - HAEMATURIA [None]
  - MYOCARDIAL INFARCTION [None]
  - PETECHIAE [None]
  - THROMBOCYTOPENIA [None]
  - THROMBOTIC THROMBOCYTOPENIC PURPURA [None]
